FAERS Safety Report 10613997 (Version 2)
Quarter: 2014Q4

REPORT INFORMATION
  Report Type: Other
  Country: US (occurrence: US)
  Receive Date: 20141128
  Receipt Date: 20141128
  Transmission Date: 20150529
  Serious: Yes (Other)
  Sender: FDA-Public Use
  Company Number: US-BRISTOL-MYERS SQUIBB COMPANY-21617782

PATIENT

DRUGS (4)
  1. ZIPRASIDONE [Suspect]
     Active Substance: ZIPRASIDONE
  2. HALOPERIDOL. [Suspect]
     Active Substance: HALOPERIDOL
  3. LITHIUM [Suspect]
     Active Substance: LITHIUM CARBONATE
  4. ARIPIPRAZOLE. [Suspect]
     Active Substance: ARIPIPRAZOLE
     Indication: BRIEF PSYCHOTIC DISORDER, WITH POSTPARTUM ONSET
     Route: 064

REACTIONS (3)
  - Microcephaly [Unknown]
  - Foetal exposure during pregnancy [Unknown]
  - Hypospadias [Unknown]
